FAERS Safety Report 5483289-X (Version None)
Quarter: 2007Q4

REPORT INFORMATION
  Report Type: 
  Country: None (occurrence: None)
  Receive Date: 20071012
  Receipt Date: 20071004
  Transmission Date: 20080405
  Serious: Yes (Other)
  Sender: FDA-Public Use
  Company Number: PHFR2007GB02924

PATIENT
  Sex: Male

DRUGS (2)
  1. EXJADE [Suspect]
     Indication: THALASSAEMIA
     Dosage: 30MG/KG
     Dates: start: 20060501, end: 20070901
  2. EXJADE [Suspect]
     Dosage: 20MG/KG
     Dates: start: 20070901

REACTIONS (2)
  - BLOOD UREA INCREASED [None]
  - SERUM FERRITIN INCREASED [None]
